FAERS Safety Report 6974536-3 (Version None)
Quarter: 2010Q3

REPORT INFORMATION
  Report Type: 
  Country: None (occurrence: None)
  Receive Date: 20100909
  Receipt Date: 20080826
  Transmission Date: 20110219
  Serious: No
  Sender: FDA-Public Use
  Company Number: US-WYE-H05721708

PATIENT
  Sex: Female
  Weight: 74.91 kg

DRUGS (1)
  1. PROTONIX [Suspect]
     Indication: ABDOMINAL PAIN
     Dates: start: 20080826, end: 20080826

REACTIONS (2)
  - DYSGEUSIA [None]
  - GLOSSODYNIA [None]
